FAERS Safety Report 7065915-7 (Version None)
Quarter: 2010Q4

REPORT INFORMATION
  Report Type: 
  Country: None (occurrence: None)
  Receive Date: 20101027
  Receipt Date: 20101019
  Transmission Date: 20110411
  Serious: Yes (Other)
  Sender: FDA-Public Use
  Company Number: US-MERCK-1010USA02481

PATIENT
  Sex: Female

DRUGS (3)
  1. FOSAMAX [Suspect]
     Route: 048
     Dates: start: 20030101, end: 20070101
  2. FOSAMAX PLUS D [Suspect]
     Route: 048
     Dates: start: 20030101, end: 20070101
  3. FOSAMAX [Suspect]
     Route: 048
     Dates: start: 20080101, end: 20080101

REACTIONS (2)
  - FEMUR FRACTURE [None]
  - HIGH TURNOVER OSTEOPATHY [None]
